FAERS Safety Report 7268018-1 (Version None)
Quarter: 2011Q1

REPORT INFORMATION
  Report Type: 
  Country: None (occurrence: None)
  Receive Date: 20110201
  Receipt Date: 20110126
  Transmission Date: 20110831
  Serious: Yes (Death)
  Sender: FDA-Public Use
  Company Number: JP-SANOFI-AVENTIS-2009SA005485

PATIENT
  Sex: Female
  Weight: 40 kg

DRUGS (19)
  1. PLAVIX [Suspect]
     Route: 048
     Dates: start: 20090709, end: 20090729
  2. ASPIRIN [Concomitant]
     Indication: ANGINA UNSTABLE
     Route: 048
     Dates: start: 20090706
  3. ALDACTONE [Concomitant]
     Indication: CARDIAC FAILURE
     Route: 042
     Dates: start: 20090706
  4. LASIX [Concomitant]
     Indication: CARDIAC FAILURE
     Route: 048
     Dates: start: 20090706
  5. TETRAMIDE [Concomitant]
     Indication: INSOMNIA
     Route: 048
     Dates: start: 20090707
  6. PLAVIX [Suspect]
     Indication: ANGINA UNSTABLE
     Route: 048
     Dates: start: 20090708, end: 20090708
  7. RIZE [Concomitant]
     Indication: INSOMNIA
     Route: 048
     Dates: start: 20090707
  8. FAMOTIDINE [Concomitant]
     Route: 042
     Dates: start: 20090705, end: 20090727
  9. ACECOL [Concomitant]
     Route: 048
     Dates: start: 20090707
  10. WARFARIN [Concomitant]
     Route: 048
     Dates: start: 20090706
  11. GASTER [Concomitant]
     Indication: PROPHYLAXIS
     Route: 048
     Dates: start: 20090728
  12. ALL OTHER THERAPEUTIC PRODUCTS [Concomitant]
     Indication: NEUROGENIC BLADDER
     Route: 048
     Dates: start: 20090707
  13. FAMOTIDINE [Concomitant]
     Route: 048
     Dates: start: 20090728
  14. HANP [Concomitant]
     Indication: CARDIAC FAILURE
     Route: 042
     Dates: start: 20090705, end: 20090707
  15. ATORVASTATIN CALCIUM [Concomitant]
     Indication: ANGINA UNSTABLE
     Route: 048
     Dates: start: 20090707
  16. WARFARIN [Concomitant]
     Indication: THROMBOSIS PROPHYLAXIS
     Route: 048
     Dates: start: 20090706
  17. FLOMOX [Concomitant]
     Indication: INFECTION PROPHYLAXIS
     Route: 048
     Dates: start: 20090708, end: 20090710
  18. HEPARIN [Concomitant]
     Indication: ANGINA UNSTABLE
     Dosage: DOSE:5000 UNIT(S)
     Route: 042
     Dates: start: 20090705, end: 20090713
  19. ADALAT CC [Concomitant]
     Route: 048
     Dates: start: 20090707

REACTIONS (1)
  - CARDIAC ARREST [None]
